FAERS Safety Report 25127557 (Version 1)
Quarter: 2025Q1

REPORT INFORMATION
  Report Type: Spontaneous
  Country: CN (occurrence: CN)
  Receive Date: 20250327
  Receipt Date: 20250327
  Transmission Date: 20250409
  Serious: Yes (Death, Hospitalization, Other)
  Sender: ROCHE
  Company Number: CN-ROCHE-10000235064

PATIENT
  Sex: Female

DRUGS (7)
  1. TRASTUZUMAB EMTANSINE [Suspect]
     Active Substance: TRASTUZUMAB EMTANSINE
     Indication: HER2 positive breast cancer
     Dosage: 15-NOV-2023, 07-DEC-2023,28-DEC-2023,18-JAN-2024,07-FEB-2024 THE PATIENT RECEIVED TRASTUZUMAB EMTANS
     Route: 042
     Dates: start: 20231023
  2. TRASTUZUMAB EMTANSINE [Suspect]
     Active Substance: TRASTUZUMAB EMTANSINE
     Route: 042
     Dates: start: 20240626
  3. Entecavir Capsules [Concomitant]
     Indication: Viral hepatitis carrier
     Route: 048
     Dates: start: 20231221, end: 20240724
  4. Hong Zao Ti Qu Ye [Concomitant]
     Indication: Thalassaemia
     Route: 048
     Dates: start: 20240118, end: 20240724
  5. CYCLOSPORINE [Concomitant]
     Active Substance: CYCLOSPORINE
     Dosage: EYE DROPS; TIME: FEBRUARY 26, 2024 TO JULY 24,?2024 12TH OF FEBRUARY; INDICATION: DRY EYE; DOSE/UNIT
     Dates: start: 20240205, end: 20240225
  6. Sodium hyaluronate eye drops [Concomitant]
     Dosage: TIME: FEBRUARY 26, 2024 TO MARCH 12, 2024;?INDICATION: DRY EYE; DOSE/UNIT: 1 DROP/EYE, TID, EYE DROP
     Dates: start: 20240206, end: 20240225
  7. BOVINE BASIC FIBROBLAST GROWTH FACTOR [Concomitant]
     Dates: start: 20240226, end: 20240312

REACTIONS (27)
  - Pyrexia [Recovering/Resolving]
  - Disease progression [Unknown]
  - Pneumonia [Recovering/Resolving]
  - Cough [Unknown]
  - Marasmus [Unknown]
  - Anaemia [Unknown]
  - Gastritis [Unknown]
  - Renal failure [Unknown]
  - Hepatic failure [Unknown]
  - Nausea [Recovered/Resolved]
  - Vomiting [Recovered/Resolved]
  - Hyperuricaemia [Unknown]
  - Pleural effusion [Unknown]
  - Cachexia [Unknown]
  - Death [Fatal]
  - Nasopharyngitis [Unknown]
  - Oedema [Unknown]
  - Biliary dilatation [Unknown]
  - Ascites [Unknown]
  - Vascular compression [Unknown]
  - Atelectasis [Unknown]
  - Pelvic fluid collection [Unknown]
  - Intra-abdominal fluid collection [Unknown]
  - Staphylococcus test positive [Unknown]
  - Pancreatic duct dilatation [Unknown]
  - Venous stenosis [Unknown]
  - Electrolyte imbalance [Unknown]

NARRATIVE: CASE EVENT DATE: 20240201
